FAERS Safety Report 6016468-3 (Version None)
Quarter: 2008Q4

REPORT INFORMATION
  Report Type: 
  Country: None (occurrence: None)
  Receive Date: 20081218
  Receipt Date: 20081204
  Transmission Date: 20090506
  Serious: Yes (Death, Hospitalization)
  Sender: FDA-Public Use
  Company Number: CERZ-1000447

PATIENT
  Age: 2 Year
  Sex: Male
  Weight: 10 kg

DRUGS (1)
  1. CEREZYME [Suspect]
     Indication: GAUCHER'S DISEASE
     Dosage: 60 IU/KG, Q2W, INTRAVENOUS
     Route: 042
     Dates: start: 20070807, end: 20080814

REACTIONS (4)
  - ANOREXIA [None]
  - CONVULSION [None]
  - COUGH [None]
  - PYREXIA [None]
